FAERS Safety Report 6664249-X (Version None)
Quarter: 2010Q2

REPORT INFORMATION
  Report Type: 
  Country: None (occurrence: None)
  Receive Date: 20100401
  Receipt Date: 20100322
  Transmission Date: 20101027
  Serious: Yes (Hospitalization, Other)
  Sender: FDA-Public Use
  Company Number: PHHY2009GB39623

PATIENT
  Sex: Female

DRUGS (7)
  1. CLOZARIL [Suspect]
     Indication: SCHIZOPHRENIA
     Dosage: 350MG/DAY
     Route: 048
     Dates: start: 20000805, end: 20090914
  2. CITALOPRAM HYDROBROMIDE [Suspect]
     Indication: DEPRESSED MOOD
     Dosage: 40 MG, UNK
     Route: 048
  3. PRIADEL [Suspect]
     Indication: MOOD ALTERED
     Dosage: 800 MG, UNK
     Route: 048
  4. OMEPRAZOLE [Concomitant]
     Dosage: 20 MG, UNK
     Route: 048
  5. AMITRIPTYLINE HYDROCHLORIDE [Concomitant]
     Dosage: 10 MG
     Route: 048
  6. BALSALAZIDE [Concomitant]
     Dosage: UNK
     Route: 048
  7. WARFARIN SODIUM [Concomitant]

REACTIONS (11)
  - COAGULOPATHY [None]
  - DIARRHOEA [None]
  - DRUG DOSE OMISSION [None]
  - ILEOSTOMY [None]
  - INTESTINAL OBSTRUCTION [None]
  - INTESTINAL RESECTION [None]
  - NEUTROPHIL COUNT INCREASED [None]
  - PLATELET COUNT INCREASED [None]
  - PULMONARY THROMBOSIS [None]
  - VOMITING [None]
  - WHITE BLOOD CELL COUNT INCREASED [None]
